FAERS Safety Report 17384625 (Version 1)
Quarter: 2020Q1

REPORT INFORMATION
  Report Type: Spontaneous
  Country: US (occurrence: US)
  Receive Date: 20200206
  Receipt Date: 20200206
  Transmission Date: 20200409
  Serious: No
  Sender: FDA-Public Use
  Company Number: US-ABBVIE-19K-163-2884473-00

PATIENT
  Age: 48 Year
  Sex: Female
  Weight: 90.8 kg

DRUGS (2)
  1. HUMIRA [Suspect]
     Active Substance: ADALIMUMAB
     Indication: PSORIASIS
     Route: 058
  2. HUMIRA [Suspect]
     Active Substance: ADALIMUMAB
     Route: 058
     Dates: start: 201907, end: 2019

REACTIONS (4)
  - Injection site haemorrhage [Unknown]
  - Liver disorder [Unknown]
  - Wrong technique in product usage process [Unknown]
  - Pain [Unknown]

NARRATIVE: CASE EVENT DATE: 20190808
